FAERS Safety Report 17083540 (Version 1)
Quarter: 2019Q4

REPORT INFORMATION
  Report Type: Spontaneous
  Country: TR (occurrence: TR)
  Receive Date: 20191127
  Receipt Date: 20191127
  Transmission Date: 20200122
  Serious: Yes (Other)
  Sender: FDA-Public Use
  Company Number: TR-PFIZER INC-2019511430

PATIENT
  Age: 57 Year
  Sex: Male

DRUGS (3)
  1. SUTENT [Suspect]
     Active Substance: SUNITINIB MALATE
     Indication: METASTATIC RENAL CELL CARCINOMA
     Dosage: 50 MG, CYCLIC (DAILY, SCHEDULE 4/2)
     Dates: start: 20170919
  2. SUTENT [Suspect]
     Active Substance: SUNITINIB MALATE
     Dosage: 50 MG, CYCLIC (DAILY, SCHEDULE 2/1)
  3. SUTENT [Suspect]
     Active Substance: SUNITINIB MALATE
     Dosage: 62.5 MG, CYCLIC (2/1)
     Dates: start: 2019

REACTIONS (14)
  - Thrombocytopenia [Unknown]
  - Mucosal inflammation [Unknown]
  - Asthenia [Unknown]
  - Off label use [Unknown]
  - Neoplasm progression [Recovered/Resolved]
  - Yellow skin [Not Recovered/Not Resolved]
  - Ascites [Recovered/Resolved]
  - Product use in unapproved indication [Unknown]
  - Peritonitis [Unknown]
  - Eyelid oedema [Not Recovered/Not Resolved]
  - Fatigue [Unknown]
  - Hypertension [Unknown]
  - Blood thyroid stimulating hormone increased [Recovered/Resolved]
  - Palmar-plantar erythrodysaesthesia syndrome [Unknown]

NARRATIVE: CASE EVENT DATE: 2017
